FAERS Safety Report 7764623-4 (Version None)
Quarter: 2011Q3

REPORT INFORMATION
  Report Type: 
  Country: None (occurrence: None)
  Receive Date: 20110921
  Receipt Date: 20110910
  Transmission Date: 20111222
  Serious: Yes (Other)
  Sender: FDA-Public Use
  Company Number: PHHY2011AU81520

PATIENT
  Age: 68 Year
  Sex: Female

DRUGS (5)
  1. ATORVASTATIN [Concomitant]
     Dosage: UNK UKN, UNK
  2. ASPIRIN [Concomitant]
     Dosage: UNK UKN, UNK
  3. DIPYRIDAMOLE [Concomitant]
     Dosage: UNK UKN, UNK
  4. TASIGNA [Suspect]
     Indication: CHRONIC MYELOID LEUKAEMIA
     Dosage: UNK UKN, UNK
     Route: 048
     Dates: start: 20080201, end: 20110601
  5. TASIGNA [Suspect]
     Dosage: 300 MG, BID
     Route: 048
     Dates: start: 20110701

REACTIONS (6)
  - PERIPHERAL VASCULAR DISORDER [None]
  - CHEST PAIN [None]
  - MYOCARDIAL ISCHAEMIA [None]
  - CORONARY ARTERY DISEASE [None]
  - ACUTE MYOCARDIAL INFARCTION [None]
  - MUSCULOSKELETAL PAIN [None]
